FAERS Safety Report 5637697-4 (Version None)
Quarter: 2008Q1

REPORT INFORMATION
  Report Type: 
  Country: None (occurrence: None)
  Receive Date: 20080220
  Receipt Date: 20080111
  Transmission Date: 20080703
  Serious: Yes (Death)
  Sender: FDA-Public Use
  Company Number: 2008-172156-NL

PATIENT
  Sex: Female

DRUGS (1)
  1. RAPLON [Suspect]
     Dosage: DF

REACTIONS (1)
  - DEATH [None]
